FAERS Safety Report 8200210-1 (Version None)
Quarter: 2012Q1

REPORT INFORMATION
  Report Type: 
  Country: None (occurrence: None)
  Receive Date: 20120306
  Receipt Date: 20120220
  Transmission Date: 20120608
  Serious: Yes (Hospitalization)
  Sender: FDA-Public Use
  Company Number: HRA-MET20120006

PATIENT
  Age: 52 Year
  Sex: Female

DRUGS (9)
  1. PROTELOS 2G (STRONTIUM RANELATE) [Concomitant]
  2. UVEDOSE 100000 IU (COLECALCIFEROL) [Concomitant]
  3. NIZORAL (METOPIRONE) (KETOCONAZOLE) [Suspect]
     Indication: HYPERADRENOCORTICISM
     Dosage: ORAL
     Route: 048
     Dates: start: 20100603, end: 20110201
  4. METOPIRONE [Suspect]
     Indication: HYPERADRENOCORTICISM
     Dosage: ORAL
     Route: 048
     Dates: start: 20110106, end: 20111021
  5. LEVOTHYROX (LEVOTHYROXINE) [Concomitant]
  6. ALDACTONE [Concomitant]
  7. TAMOXIFEN 20 MG (TAMOXIFEN) [Concomitant]
  8. CRESTOR [Concomitant]
  9. EZETROL 10 MG (EZETIMIBE) [Concomitant]

REACTIONS (4)
  - ASTHENIA [None]
  - DIARRHOEA [None]
  - MYOCLONUS [None]
  - HYPONATRAEMIA [None]
